FAERS Safety Report 4651540-1 (Version None)
Quarter: 2005Q2

REPORT INFORMATION
  Report Type: 
  Country: None (occurrence: None)
  Receive Date: 20050503
  Receipt Date: 20050407
  Transmission Date: 20051028
  Serious: Yes (Death, Hospitalization)
  Sender: FDA-Public Use
  Company Number: IL-MERCK-0504ISR00007

PATIENT
  Sex: Male

DRUGS (2)
  1. CANCIDAS [Suspect]
     Indication: CANDIDA SEPSIS
     Route: 042
     Dates: start: 20050301, end: 20050301
  2. CANCIDAS [Suspect]
     Route: 042
     Dates: start: 20050301, end: 20050301

REACTIONS (4)
  - ACUTE RESPIRATORY DISTRESS SYNDROME [None]
  - BACTERIA BLOOD IDENTIFIED [None]
  - CANDIDA SEPSIS [None]
  - DRUG INEFFECTIVE [None]
